FAERS Safety Report 25127957 (Version 1)
Quarter: 2025Q1

REPORT INFORMATION
  Report Type: Spontaneous
  Country: BR (occurrence: BR)
  Receive Date: 20250327
  Receipt Date: 20250327
  Transmission Date: 20250409
  Serious: Yes (Hospitalization, Other)
  Sender: AMGEN
  Company Number: BR-AMGEN-BRASP2025055334

PATIENT

DRUGS (2)
  1. INFLIXIMAB [Suspect]
     Active Substance: INFLIXIMAB
     Indication: Colitis ulcerative
     Route: 065
  2. INFLIXIMAB [Suspect]
     Active Substance: INFLIXIMAB
     Dosage: 5 MILLIGRAM/KILOGRAM, Q8WK AS MAINTENANCE DOSE
     Route: 065

REACTIONS (24)
  - Colitis ulcerative [Unknown]
  - Biliary tract infection bacterial [Unknown]
  - Neoplasm prostate [Unknown]
  - Cervix neoplasm [Unknown]
  - Clostridium difficile infection [Unknown]
  - COVID-19 [Unknown]
  - Cytomegalovirus infection [Unknown]
  - Pseudomembranous colitis [Unknown]
  - Pyelonephritis [Unknown]
  - Erysipelas [Unknown]
  - Tuberculosis [Unknown]
  - Leprosy [Unknown]
  - Pneumonia [Unknown]
  - Herpes zoster [Unknown]
  - Drug ineffective [Unknown]
  - Paradoxical psoriasis [Unknown]
  - Adverse event [Unknown]
  - Urinary tract infection [Unknown]
  - Respiratory tract infection [Unknown]
  - Infusion related reaction [Unknown]
  - Nasopharyngitis [Unknown]
  - Cellulitis [Unknown]
  - Chikungunya virus infection [Unknown]
  - Arthralgia [Unknown]
